FAERS Safety Report 6690301-9 (Version None)
Quarter: 2010Q2

REPORT INFORMATION
  Report Type: 
  Country: None (occurrence: None)
  Receive Date: 20100421
  Receipt Date: 20100412
  Transmission Date: 20101027
  Serious: Yes (Other)
  Sender: FDA-Public Use
  Company Number: PHHY2009CA27088

PATIENT
  Sex: Male
  Weight: 49 kg

DRUGS (9)
  1. SANDOSTATIN LAR [Suspect]
     Indication: HEPATIC NEOPLASM MALIGNANT
     Dosage: 30 MG, QMO
     Route: 030
     Dates: start: 20090701
  2. COZAAR [Concomitant]
     Dosage: 25 MG, QHS
  3. NORVASC [Concomitant]
     Dosage: 2.5 MG, QD
  4. TRAVASTATIN [Concomitant]
     Dosage: UNK
  5. ASAPHEN [Concomitant]
     Dosage: 80 MG, QD
  6. PANTOPRAZOLE [Concomitant]
     Dosage: 40 MG, QD
  7. NOVOQUININE [Concomitant]
     Dosage: 300 MG, QHS
  8. ATIVAN [Concomitant]
     Dosage: 1 MG, QHS
  9. LOVENOX [Concomitant]

REACTIONS (8)
  - ABDOMINAL PAIN [None]
  - BLOOD PRESSURE INCREASED [None]
  - BONE PAIN [None]
  - DECREASED APPETITE [None]
  - INJECTION SITE PAIN [None]
  - MALAISE [None]
  - NAUSEA [None]
  - WEIGHT DECREASED [None]
